FAERS Safety Report 9300906 (Version 1)
Quarter: 2013Q2

REPORT INFORMATION
  Report Type: Report from Study
  Country: US (occurrence: US)
  Receive Date: 20130521
  Receipt Date: 20130521
  Transmission Date: 20140414
  Serious: Yes (Hospitalization)
  Sender: FDA-Public Use
  Company Number: US-PFIZER INC-2013152489

PATIENT
  Age: 15 Year
  Sex: Female

DRUGS (2)
  1. PREGABALIN [Suspect]
     Dosage: UNK
  2. TRAMADOL HCL [Suspect]
     Dosage: UNK

REACTIONS (5)
  - Drug abuse [Unknown]
  - Convulsion [Unknown]
  - Mydriasis [Unknown]
  - Hyperreflexia [Unknown]
  - Ataxia [Unknown]
